FAERS Safety Report 16668576 (Version 2)
Quarter: 2019Q3

REPORT INFORMATION
  Report Type: Spontaneous
  Country: US (occurrence: US)
  Receive Date: 20190805
  Receipt Date: 20190807
  Transmission Date: 20191004
  Serious: No
  Sender: FDA-Public Use
  Company Number: US-PFIZER INC-2019330582

PATIENT
  Age: 83 Year
  Sex: Female
  Weight: 67.59 kg

DRUGS (2)
  1. TOVIAZ [Suspect]
     Active Substance: FESOTERODINE FUMARATE
     Indication: URINARY INCONTINENCE
     Dosage: 12 MG, 1X/DAY
  2. TOVIAZ [Suspect]
     Active Substance: FESOTERODINE FUMARATE
     Dosage: TAKES 3-4MG IN THE MORNING BY MOUTH AND 8MG AT NIGHT
     Route: 048

REACTIONS (5)
  - Muscle tightness [Unknown]
  - Oesophageal disorder [Unknown]
  - Dysphagia [Unknown]
  - Abdominal discomfort [Unknown]
  - Off label use [Unknown]
